FAERS Safety Report 15075998 (Version 1)
Quarter: 2018Q2

REPORT INFORMATION
  Report Type: Spontaneous
  Country: FR (occurrence: FR)
  Receive Date: 20180627
  Receipt Date: 20180627
  Transmission Date: 20180711
  Serious: Yes (Hospitalization)
  Sender: FDA-Public Use
  Company Number: PHHY2018FR029454

PATIENT
  Age: 59 Year
  Sex: Female

DRUGS (1)
  1. METHOTREXATE. [Suspect]
     Active Substance: METHOTREXATE
     Indication: PSORIATIC ARTHROPATHY
     Dosage: 7.5 MG, QW (2-0-1 LE MARDI)
     Route: 048
     Dates: start: 201401, end: 201605

REACTIONS (2)
  - Thrombocytopenia [Unknown]
  - Cholestasis [Unknown]

NARRATIVE: CASE EVENT DATE: 201604
